FAERS Safety Report 15244622 (Version 2)
Quarter: 2018Q4

REPORT INFORMATION
  Report Type: Spontaneous
  Country: JP (occurrence: JP)
  Receive Date: 20180806
  Receipt Date: 20181107
  Transmission Date: 20190204
  Serious: Yes (Hospitalization)
  Sender: FDA-Public Use
  Company Number: JP-GLAXOSMITHKLINE-JP2018JPN104033

PATIENT
  Sex: Male

DRUGS (1)
  1. SULTANOL [Suspect]
     Active Substance: ALBUTEROL SULFATE
     Dosage: UNK
     Route: 055

REACTIONS (2)
  - Asthma [Unknown]
  - Treatment noncompliance [Unknown]
